FAERS Safety Report 21043118 (Version 4)
Quarter: 2023Q1

REPORT INFORMATION
  Report Type: Spontaneous
  Country: CA (occurrence: CA)
  Receive Date: 20220705
  Receipt Date: 20230331
  Transmission Date: 20230418
  Serious: Yes (Hospitalization, Other)
  Sender: FDA-Public Use
  Company Number: CA-PFIZER INC-202200694599

PATIENT
  Age: 56 Year
  Sex: Male

DRUGS (2)
  1. ABRILADA [Suspect]
     Active Substance: ADALIMUMAB-AFZB
     Indication: Crohn^s disease
     Dosage: 1 DF, (EVERY 2 WEEKS), 160 MG WEEK 0, 80 MG WEEK 2, 40 MG EVERY 2 WEEKS
     Route: 058
     Dates: start: 20220506, end: 20220606
  2. PREDNISONE [Concomitant]
     Active Substance: PREDNISONE
     Dosage: 1 DF DOSAGE NOT AVAILABLE
     Route: 065
     Dates: start: 20220414

REACTIONS (2)
  - Intestinal obstruction [Unknown]
  - Synovitis [Unknown]

NARRATIVE: CASE EVENT DATE: 20220601
